FAERS Safety Report 5395931-2 (Version None)
Quarter: 2007Q3

REPORT INFORMATION
  Report Type: 
  Country: None (occurrence: None)
  Receive Date: 20070724
  Receipt Date: 20070712
  Transmission Date: 20080115
  Serious: Yes (Other)
  Sender: FDA-Public Use
  Company Number: FR-PFIZER INC-2007057107

PATIENT

DRUGS (1)
  1. SUTENT [Suspect]

REACTIONS (1)
  - ANAL INFLAMMATION [None]
